FAERS Safety Report 5934781-2 (Version None)
Quarter: 2008Q4

REPORT INFORMATION
  Report Type: 
  Country: None (occurrence: None)
  Receive Date: 20081010
  Receipt Date: 20080425
  Transmission Date: 20090506
  Serious: Yes (Hospitalization)
  Sender: FDA-Public Use
  Company Number: 2008SP007773

PATIENT
  Age: 29 Year
  Sex: Female

DRUGS (8)
  1. TEMODAR [Suspect]
     Indication: NEUROBLASTOMA
     Dosage: 100 MG/M2; PO
     Route: 048
     Dates: start: 20080310, end: 20080411
  2. IRINOTECAN HYDROCHLORIDE [Suspect]
     Indication: NEUROBLASTOMA
     Dosage: 10 MG/M2
     Dates: start: 20080310, end: 20080411
  3. ANZEMET [Concomitant]
  4. ZOMETA [Concomitant]
  5. ZOLADEX [Concomitant]
  6. ARANESP [Concomitant]
  7. NEURONTIN [Concomitant]
  8. EFFEXOR [Concomitant]

REACTIONS (7)
  - ANAEMIA [None]
  - LEUKOPENIA [None]
  - LYMPHOMA [None]
  - LYMPHOPENIA [None]
  - NEUTROPENIA [None]
  - PYREXIA [None]
  - THROMBOCYTOPENIA [None]
